FAERS Safety Report 4573047-2 (Version None)
Quarter: 2005Q1

REPORT INFORMATION
  Report Type: 
  Country: None (occurrence: None)
  Receive Date: 20050204
  Receipt Date: 20050120
  Transmission Date: 20050727
  Serious: Yes (Life-Threatening, Hospitalization, Disabling)
  Sender: FDA-Public Use
  Company Number: MK200501-0178-1

PATIENT
  Age: 25 Year
  Sex: Male

DRUGS (5)
  1. ANAFRANIL CAP [Suspect]
     Indication: DEPRESSION
     Dosage: 2000 MG, ONE TIME
  2. LUDIOMIL [Suspect]
     Dosage: (ONE TIME DOSE)
  3. AMOXAPINE [Suspect]
     Dosage: (ONE TIME DOSE)
  4. ETIZOLAM [Concomitant]
  5. ROHYPNOL [Concomitant]

REACTIONS (7)
  - DEPRESSED LEVEL OF CONSCIOUSNESS [None]
  - HEART RATE DECREASED [None]
  - HEART RATE INCREASED [None]
  - HYPOTENSION [None]
  - MULTIPLE DRUG OVERDOSE [None]
  - QRS AXIS ABNORMAL [None]
  - STATUS EPILEPTICUS [None]
